FAERS Safety Report 10466972 (Version 3)
Quarter: 2018Q2

REPORT INFORMATION
  Report Type: Report from Study
  Country: KR (occurrence: KR)
  Receive Date: 20140922
  Receipt Date: 20180514
  Transmission Date: 20180711
  Serious: Yes (Death)
  Sender: FDA-Public Use
  Company Number: KR-SA-2014SA121409

PATIENT
  Age: 20 Year
  Sex: Female
  Weight: 51.2 kg

DRUGS (4)
  1. ETOPOSIDE. [Concomitant]
     Active Substance: ETOPOSIDE
     Indication: CHEMOTHERAPY
     Route: 042
     Dates: start: 20140819, end: 20140823
  2. CYCLOPHOSPHAMIDE. [Concomitant]
     Active Substance: CYCLOPHOSPHAMIDE
     Indication: CHEMOTHERAPY
     Route: 042
     Dates: start: 20140819, end: 20140823
  3. AMPHOTERICINE B, LIPOSOME [Concomitant]
     Active Substance: AMPHOTERICIN B
     Indication: ASPERGILLUS INFECTION
     Route: 042
     Dates: start: 20140618, end: 20140829
  4. EVOLTRA [Suspect]
     Active Substance: CLOFARABINE
     Indication: ACUTE LYMPHOCYTIC LEUKAEMIA
     Route: 065
     Dates: start: 20140819

REACTIONS (3)
  - Acute kidney injury [Fatal]
  - Septic shock [Fatal]
  - Febrile neutropenia [Fatal]

NARRATIVE: CASE EVENT DATE: 20140825
